FAERS Safety Report 8908303 (Version 2)
Quarter: 2012Q4

REPORT INFORMATION
  Report Type: 
  Country: JP (occurrence: JP)
  Receive Date: 20121114
  Receipt Date: 20121212
  Transmission Date: 20130627
  Serious: Yes (Other)
  Sender: FDA-Public Use
  Company Number: PHHY2012JP097681

PATIENT
  Age: 59 Year
  Sex: Male
  Weight: 69 kg

DRUGS (6)
  1. ZOMETA [Suspect]
     Indication: BONE LESION
     Dosage: 4 mg, every 4 weeks
     Route: 041
     Dates: start: 200804, end: 20120723
  2. THALED [Concomitant]
     Route: 048
  3. PREDONINE [Concomitant]
     Dosage: UNK UKN, UNK
     Route: 048
  4. MAGMITT [Concomitant]
     Route: 048
  5. ADRENOCORTICOTROPHIC HORMONE [Concomitant]
  6. ALKERAN [Concomitant]

REACTIONS (4)
  - Osteonecrosis of jaw [Not Recovered/Not Resolved]
  - Pain in jaw [Not Recovered/Not Resolved]
  - Periodontal destruction [Unknown]
  - Osteosclerosis [Unknown]
